FAERS Safety Report 9695797 (Version 1)
Quarter: 2013Q4

REPORT INFORMATION
  Report Type: Spontaneous
  Country: US (occurrence: None)
  Receive Date: 20131118
  Receipt Date: 20131118
  Transmission Date: 20140711
  Serious: No
  Sender: FDA-Public Use
  Company Number: None

PATIENT
  Age: 7 Year
  Sex: Female
  Weight: 28.12 kg

DRUGS (1)
  1. METHYLPHENIDATE [Suspect]
     Indication: ATTENTION DEFICIT/HYPERACTIVITY DISORDER
     Route: 048
     Dates: start: 20131107, end: 20131114

REACTIONS (10)
  - Abnormal behaviour [None]
  - Decreased appetite [None]
  - Mood swings [None]
  - Anger [None]
  - Crying [None]
  - Delusion [None]
  - Vision blurred [None]
  - Increased appetite [None]
  - Panic attack [None]
  - Memory impairment [None]
